FAERS Safety Report 11308024 (Version 2)
Quarter: 2017Q1

REPORT INFORMATION
  Report Type: Spontaneous
  Country: FR (occurrence: FR)
  Receive Date: 20150724
  Receipt Date: 20170112
  Transmission Date: 20170428
  Serious: Yes (Hospitalization)
  Sender: FDA-Public Use
  Company Number: FR-BEH-2015052548

PATIENT
  Age: 19 Year
  Sex: Female

DRUGS (4)
  1. MABTHERA [Suspect]
     Active Substance: RITUXIMAB
     Indication: THROMBOCYTOPENIA
     Dosage: 1 GBQ, OD, 1 SINGLE DOSE
     Route: 042
     Dates: start: 20150605, end: 20150605
  2. IMUREL [Concomitant]
     Active Substance: AZATHIOPRINE SODIUM
     Dosage: 100 MG, QD, 1 IN 1 DAY(S)
     Route: 048
  3. CORTANCYL [Concomitant]
     Active Substance: PREDNISONE
     Dosage: 40 MG, QD, 1 IN 1 DAY(S)
     Route: 048
  4. PRIVIGEN [Suspect]
     Active Substance: HUMAN IMMUNOGLOBULIN G
     Indication: THROMBOCYTOPENIA
     Dosage: 2000 MG/KG, UNK, 1 SINGLE DOSE
     Route: 042
     Dates: start: 20150609, end: 20150609

REACTIONS (2)
  - Haemolytic anaemia [Recovered/Resolved]
  - Autoimmune haemolytic anaemia [Recovered/Resolved]

NARRATIVE: CASE EVENT DATE: 20150612
